FAERS Safety Report 26136536 (Version 1)
Quarter: 2025Q4

REPORT INFORMATION
  Report Type: Spontaneous
  Country: US (occurrence: US)
  Receive Date: 20251209
  Receipt Date: 20251209
  Transmission Date: 20260117
  Serious: Yes (Hospitalization, Other)
  Sender: NOVO NORDISK
  Company Number: US-NOVOPROD-1580120

PATIENT
  Sex: Male

DRUGS (1)
  1. LEVEMIR [Suspect]
     Active Substance: INSULIN DETEMIR
     Indication: Product used for unknown indication
     Dosage: UNK

REACTIONS (7)
  - Fall [Unknown]
  - Hip fracture [Unknown]
  - Urinary tract infection [Unknown]
  - Surgery [Unknown]
  - Post procedural complication [Unknown]
  - Hypersensitivity [Unknown]
  - Unevaluable event [Unknown]
